FAERS Safety Report 6303568-3 (Version None)
Quarter: 2009Q3

REPORT INFORMATION
  Report Type: 
  Country: None (occurrence: None)
  Receive Date: 20090807
  Receipt Date: 20090807
  Transmission Date: 20100115
  Serious: Yes (Other)
  Sender: FDA-Public Use
  Company Number: None

PATIENT
  Age: 7 Year
  Sex: Male
  Weight: 110 kg

DRUGS (1)
  1. ZYBAN [Suspect]
     Indication: SMOKING CESSATION THERAPY
     Dosage: 150 MG Q.D. PO
     Route: 048
     Dates: start: 20021002, end: 20021005

REACTIONS (4)
  - ANXIETY [None]
  - CONDITION AGGRAVATED [None]
  - HEADACHE [None]
  - TOBACCO USER [None]
